FAERS Safety Report 7819604-9 (Version None)
Quarter: 2011Q4

REPORT INFORMATION
  Report Type: 
  Country: None (occurrence: None)
  Receive Date: 20111018
  Receipt Date: 20111018
  Transmission Date: 20120403
  Serious: Yes (Other)
  Sender: FDA-Public Use
  Company Number: None

PATIENT
  Age: 65 Year
  Sex: Female
  Weight: 99.79 kg

DRUGS (1)
  1. LYRICA [Suspect]
     Indication: SPINAL FUSION SURGERY
     Dosage: 1 CAPSULE
     Route: 048
     Dates: start: 20110922, end: 20111003

REACTIONS (2)
  - SWELLING FACE [None]
  - LIP SWELLING [None]
